FAERS Safety Report 7096698-2 (Version None)
Quarter: 2010Q4

REPORT INFORMATION
  Report Type: 
  Country: None (occurrence: None)
  Receive Date: 20101111
  Receipt Date: 20091104
  Transmission Date: 20110411
  Serious: No
  Sender: FDA-Public Use
  Company Number: US-KINGPHARMUSA00001-K200901392

PATIENT
  Sex: Male
  Weight: 90.703 kg

DRUGS (2)
  1. EMBEDA [Suspect]
     Indication: ANALGESIC THERAPY
     Dosage: 50 MG, UNK
     Dates: start: 20091029, end: 20090101
  2. MUSCLE RELAXANTS [Concomitant]
     Indication: MUSCLE RELAXANT THERAPY
     Dosage: UNK

REACTIONS (2)
  - ANXIETY [None]
  - DRUG INEFFECTIVE [None]
